FAERS Safety Report 7231212-X (Version None)
Quarter: 2011Q1

REPORT INFORMATION
  Report Type: 
  Country: None (occurrence: None)
  Receive Date: 20110118
  Receipt Date: 20110112
  Transmission Date: 20110831
  Serious: Yes (Other)
  Sender: FDA-Public Use
  Company Number: B0665834A

PATIENT
  Sex: Male

DRUGS (6)
  1. KEPPRA [Suspect]
     Indication: EPILEPSY
     Dosage: 750MG TWICE PER DAY
     Route: 048
     Dates: start: 20091222, end: 20100413
  2. URBANYL [Suspect]
     Dosage: 10MG TWICE PER DAY
     Route: 048
     Dates: start: 20100317, end: 20100326
  3. NEXIUM [Concomitant]
  4. CORTANCYL [Concomitant]
  5. TEMODAL [Suspect]
     Indication: GLIOBLASTOMA
     Dosage: 145MG PER DAY
     Route: 048
     Dates: start: 20100222, end: 20100331
  6. VALACICLOVIR [Suspect]
     Route: 048
     Dates: start: 20100317, end: 20100323

REACTIONS (3)
  - GLIOBLASTOMA [None]
  - CYTOLYTIC HEPATITIS [None]
  - HEPATITIS CHOLESTATIC [None]
